FAERS Safety Report 7811680-2 (Version None)
Quarter: 2011Q4

REPORT INFORMATION
  Report Type: 
  Country: None (occurrence: None)
  Receive Date: 20111013
  Receipt Date: 20111004
  Transmission Date: 20120403
  Serious: Yes (Death, Hospitalization)
  Sender: FDA-Public Use
  Company Number: DK-PFIZER INC-2011138569

PATIENT
  Age: 73 Year
  Sex: Female

DRUGS (8)
  1. POTASSIUM [Concomitant]
     Dosage: 750 MG, 3X/DAY
  2. PRAVASTATIN [Concomitant]
     Dosage: 40 MG, 1X/DAY
  3. ACETAMINOPHEN [Concomitant]
     Indication: PAIN
     Dosage: 1 G, 4X/DAY
     Dates: start: 19940518
  4. CALCIUM [Concomitant]
     Dosage: 1 TABLET DAILY
  5. PIVMECILLINAM [Concomitant]
     Dosage: 200 MG, 3X/DAY
  6. CELECOXIB [Suspect]
     Indication: OSTEOARTHRITIS
     Dosage: 200 MG, 2X/DAY
     Route: 048
     Dates: start: 20090401
  7. FUROSEMIDE [Concomitant]
     Indication: DIURETIC THERAPY
     Dosage: 40 MG, 3X/DAY
     Dates: start: 19950718
  8. LOSARTAN [Concomitant]
     Indication: BLOOD PRESSURE
     Dosage: UNK
     Dates: start: 20101230

REACTIONS (2)
  - CEREBROVASCULAR ACCIDENT [None]
  - ATRIAL FIBRILLATION [None]
